FAERS Safety Report 11771307 (Version 3)
Quarter: 2016Q1

REPORT INFORMATION
  Report Type: Report from Study
  Country: CA (occurrence: CA)
  Receive Date: 20151124
  Receipt Date: 20160310
  Transmission Date: 20160525
  Serious: Yes (Hospitalization, Other)
  Sender: FDA-Public Use
  Company Number: CA-ROCHE-1601367

PATIENT
  Age: 71 Year
  Sex: Male
  Weight: 74 kg

DRUGS (14)
  1. ESBRIET [Suspect]
     Active Substance: PIRFENIDONE
     Route: 048
     Dates: start: 20150711
  2. ESBRIET [Suspect]
     Active Substance: PIRFENIDONE
     Route: 048
     Dates: start: 20150819
  3. VITAMIN E [Concomitant]
     Active Substance: .ALPHA.-TOCOPHEROL
  4. ESBRIET [Suspect]
     Active Substance: PIRFENIDONE
     Route: 048
     Dates: start: 20150704
  5. SPIRIVA [Concomitant]
     Active Substance: TIOTROPIUM BROMIDE MONOHYDRATE
  6. TECTA [Concomitant]
     Active Substance: PANTOPRAZOLE MAGNESIUM
  7. SIMVASTATIN. [Concomitant]
     Active Substance: SIMVASTATIN
  8. ESBRIET [Suspect]
     Active Substance: PIRFENIDONE
     Indication: IDIOPATHIC PULMONARY FIBROSIS
     Route: 048
     Dates: start: 20150627
  9. ESBRIET [Suspect]
     Active Substance: PIRFENIDONE
     Route: 048
     Dates: start: 20150818
  10. OMNARIS [Concomitant]
     Active Substance: CICLESONIDE
  11. VITAMIN D3 [Concomitant]
     Active Substance: CHOLECALCIFEROL
  12. DOVOBET [Concomitant]
     Active Substance: BETAMETHASONE\CALCIPOTRIENE
     Indication: PSORIASIS
     Route: 065
  13. ESBRIET [Suspect]
     Active Substance: PIRFENIDONE
     Route: 048
     Dates: start: 20151119
  14. ASA [Concomitant]
     Active Substance: ASPIRIN
     Route: 065

REACTIONS (12)
  - Cough [Not Recovered/Not Resolved]
  - Pain [Unknown]
  - Decreased appetite [Recovering/Resolving]
  - Drug dose omission [Unknown]
  - Nausea [Recovering/Resolving]
  - Forced vital capacity decreased [Unknown]
  - Pneumonia [Unknown]
  - Carbon monoxide diffusing capacity decreased [Unknown]
  - Nasal congestion [Unknown]
  - Asthenia [Not Recovered/Not Resolved]
  - Increased appetite [Not Recovered/Not Resolved]
  - Fatigue [Not Recovered/Not Resolved]

NARRATIVE: CASE EVENT DATE: 20150627
